FAERS Safety Report 6170215-3 (Version None)
Quarter: 2009Q2

REPORT INFORMATION
  Report Type: 
  Country: None (occurrence: None)
  Receive Date: 20090427
  Receipt Date: 20090427
  Transmission Date: 20091009
  Serious: Yes (Hospitalization)
  Sender: FDA-Public Use
  Company Number: None

PATIENT
  Sex: Female

DRUGS (3)
  1. ISONIAZID [Suspect]
     Dosage: 300MG PO DAILY
     Route: 048
     Dates: start: 20090421
  2. ISONIAZID [Suspect]
     Dosage: 300MG PO DAILY
     Route: 048
     Dates: start: 20090422
  3. ISONIAZID [Suspect]
     Dosage: 300MG PO DAILY
     Route: 048
     Dates: start: 20090423

REACTIONS (4)
  - CHILLS [None]
  - DYSPNOEA [None]
  - HOT FLUSH [None]
  - THROAT TIGHTNESS [None]
